FAERS Safety Report 12928872 (Version 1)
Quarter: 2016Q4

REPORT INFORMATION
  Report Type: Report from Study
  Country: US (occurrence: US)
  Receive Date: 20161110
  Receipt Date: 20161110
  Transmission Date: 20170207
  Serious: Yes (Other)
  Sender: FDA-Public Use
  Company Number: US-BRISTOL-MYERS SQUIBB COMPANY-BMS-2016-090357

PATIENT
  Sex: Male

DRUGS (1)
  1. NIVOLUMAB [Suspect]
     Active Substance: NIVOLUMAB
     Indication: RENAL CANCER
     Dosage: UNK
     Route: 042

REACTIONS (12)
  - Neck pain [Unknown]
  - Diarrhoea [Unknown]
  - Malaise [Unknown]
  - Feeling cold [Unknown]
  - Visual impairment [Unknown]
  - Asthenia [Unknown]
  - Headache [Unknown]
  - Thrombosis [Unknown]
  - Somnolence [Unknown]
  - Constipation [Unknown]
  - Abdominal pain upper [Unknown]
  - Petechiae [Unknown]
